FAERS Safety Report 14177496 (Version 1)
Quarter: 2017Q4

REPORT INFORMATION
  Report Type: Spontaneous
  Country: GB (occurrence: GB)
  Receive Date: 20171110
  Receipt Date: 20171110
  Transmission Date: 20180321
  Serious: Yes (Other)
  Sender: FDA-Public Use
  Company Number: GB-ASTELLAS-2017US045974

PATIENT
  Age: 60 Year
  Sex: Male

DRUGS (2)
  1. ISAVUCONAZOLE [Suspect]
     Active Substance: ISAVUCONAZOLE
     Route: 048
  2. ISAVUCONAZOLE [Suspect]
     Active Substance: ISAVUCONAZOLE
     Indication: BRONCHOPULMONARY ASPERGILLOSIS
     Route: 048
     Dates: start: 20160219

REACTIONS (4)
  - Lethargy [Recovered/Resolved]
  - Off label use [Unknown]
  - Asthenia [Recovered/Resolved]
  - Underdose [Unknown]
